FAERS Safety Report 12074271 (Version 1)
Quarter: 2016Q1

REPORT INFORMATION
  Report Type: Spontaneous
  Country: US (occurrence: US)
  Receive Date: 20160212
  Receipt Date: 20160212
  Transmission Date: 20160526
  Serious: Yes (Other)
  Sender: FDA-Public Use
  Company Number: US-AUROBINDO-AUR-APL-2016-01240

PATIENT
  Age: 56 Year
  Sex: Female

DRUGS (3)
  1. RIBAVIRIN 200MG [Suspect]
     Active Substance: RIBAVIRIN
     Indication: HEPATITIS C
     Dosage: 200 MG, TWO TIMES A DAY
     Route: 065
  2. RIBAVIRIN 200MG [Suspect]
     Active Substance: RIBAVIRIN
     Dosage: 200 MG, ONCE A DAY
  3. PEGYLATED INTERFERON ALPHA NOS [Suspect]
     Active Substance: PEGINTERFERON ALFA-2A OR PEGINTERFERON ALFA-2B
     Indication: HEPATITIS C
     Route: 065

REACTIONS (4)
  - Acute kidney injury [Recovered/Resolved]
  - Lupus-like syndrome [Recovered/Resolved]
  - Anaemia [Unknown]
  - Tubulointerstitial nephritis [Recovered/Resolved]
